FAERS Safety Report 13721787 (Version 3)
Quarter: 2017Q4

REPORT INFORMATION
  Report Type: Spontaneous
  Country: AT (occurrence: AT)
  Receive Date: 20170706
  Receipt Date: 20171229
  Transmission Date: 20180320
  Serious: Yes (Hospitalization, Other)
  Sender: FDA-Public Use
  Company Number: AT-JNJFOC-20170700959

PATIENT
  Age: 75 Year
  Sex: Male

DRUGS (11)
  1. RISPERDAL [Suspect]
     Active Substance: RISPERIDONE
     Indication: DELIRIUM
     Dosage: DOSE REDUCED TO 1 MG AND THEN STOPPED
     Route: 048
     Dates: start: 20170528
  2. LISINOPRIL. [Concomitant]
     Active Substance: LISINOPRIL
     Dosage: INITIATED SINCE YEARS
     Route: 065
  3. LEGALON [Concomitant]
     Active Substance: DIETARY SUPPLEMENT\HERBALS\MILK THISTLE
     Dosage: INITIATED SINCE MONTHS
     Route: 065
  4. KEFZOL [Concomitant]
     Active Substance: CEFAZOLIN SODIUM
     Indication: URINARY TRACT INFECTION
     Route: 042
     Dates: start: 20170518, end: 20170530
  5. RISPERDAL [Suspect]
     Active Substance: RISPERIDONE
     Indication: DELIRIUM
     Route: 048
     Dates: start: 20170523, end: 20170523
  6. RISPERDAL [Suspect]
     Active Substance: RISPERIDONE
     Indication: DELIRIUM
     Route: 048
     Dates: start: 20170524, end: 20170524
  7. RISPERDAL [Suspect]
     Active Substance: RISPERIDONE
     Indication: DELIRIUM
     Route: 048
     Dates: start: 20170520, end: 20170522
  8. SORTIS [Concomitant]
     Active Substance: ATORVASTATIN
     Dosage: INITIATED SINCE YEARS
     Route: 065
  9. LEVONEX [Concomitant]
     Route: 058
     Dates: start: 20170518
  10. TEMESTA [Concomitant]
     Active Substance: LORAZEPAM
     Route: 065
     Dates: start: 20170520, end: 20170521
  11. TEBOFORTAN [Concomitant]
     Active Substance: GINKGO
     Dosage: INITIATED SINCE MONTHS
     Route: 065

REACTIONS (5)
  - Confusional state [Unknown]
  - Dysarthria [Unknown]
  - Restlessness [Unknown]
  - Dysphagia [Recovered/Resolved]
  - Leukoencephalopathy [Unknown]

NARRATIVE: CASE EVENT DATE: 20170521
